FAERS Safety Report 4892154-8 (Version None)
Quarter: 2006Q1

REPORT INFORMATION
  Report Type: 
  Country: None (occurrence: None)
  Receive Date: 20060124
  Receipt Date: 20060109
  Transmission Date: 20060701
  Serious: Yes (Hospitalization)
  Sender: FDA-Public Use
  Company Number: 200601IM000061

PATIENT
  Age: 48 Year
  Sex: Female

DRUGS (3)
  1. INFERGEN [Suspect]
     Indication: HEPATITIS C
     Dosage: SEE IMAGE
     Route: 058
     Dates: end: 20051221
  2. INFERGEN [Suspect]
     Indication: HEPATITIS C
     Dosage: SEE IMAGE
     Route: 058
     Dates: start: 20050315
  3. LITHIUM [Concomitant]

REACTIONS (3)
  - DELUSION [None]
  - DRUG DOSE OMISSION [None]
  - PARANOIA [None]
